FAERS Safety Report 10307783 (Version 2)
Quarter: 2014Q3

REPORT INFORMATION
  Report Type: Spontaneous
  Country: GB (occurrence: GB)
  Receive Date: 20140716
  Receipt Date: 20140716
  Transmission Date: 20150326
  Serious: Yes (Other)
  Sender: FDA-Public Use
  Company Number: GB-ASTELLAS-2014EU009057

PATIENT
  Age: 67 Year
  Sex: Female
  Weight: 109 kg

DRUGS (1)
  1. VESICARE [Suspect]
     Active Substance: SOLIFENACIN SUCCINATE
     Indication: INCONTINENCE
     Dosage: UNK, UNKNOWN FREQ.
     Route: 048
     Dates: start: 20140603, end: 20140626

REACTIONS (3)
  - Fatigue [Recovered/Resolved]
  - Coordination abnormal [Recovered/Resolved]
  - Hallucination [Recovered/Resolved]

NARRATIVE: CASE EVENT DATE: 20140603
